FAERS Safety Report 24835239 (Version 1)
Quarter: 2025Q1

REPORT INFORMATION
  Report Type: Spontaneous
  Country: US (occurrence: None)
  Receive Date: 20250110
  Receipt Date: 20250110
  Transmission Date: 20250409
  Serious: Yes (Death)
  Sender: FDA-CTU
  Company Number: None

PATIENT
  Sex: Male

DRUGS (4)
  1. COLLAGENASE SANTYL [Suspect]
     Active Substance: COLLAGENASE CLOSTRIDIUM HISTOLYTICUM
     Indication: Wound
     Dosage: FREQUENCY : DAILY;?
     Route: 061
     Dates: start: 20240911, end: 20241107
  2. ATORVASTATIN [Concomitant]
     Active Substance: ATORVASTATIN
  3. Hydralazine 50 [Concomitant]
  4. Metoprolol Tartrate 25 [Concomitant]

REACTIONS (1)
  - Death [None]
